FAERS Safety Report 5569418-8 (Version None)
Quarter: 2007Q4

REPORT INFORMATION
  Report Type: 
  Country: None (occurrence: None)
  Receive Date: 20071220
  Receipt Date: 20071212
  Transmission Date: 20080405
  Serious: Yes (Hospitalization)
  Sender: FDA-Public Use
  Company Number: FR-ASTRAZENECA-2007CG01714

PATIENT
  Age: 71 Year
  Sex: Female

DRUGS (4)
  1. INEXIUM [Suspect]
     Route: 048
     Dates: end: 20071016
  2. VANCOMYCIN [Suspect]
     Route: 042
     Dates: start: 20070920, end: 20071015
  3. RIFADIN [Suspect]
     Route: 042
     Dates: start: 20070920, end: 20071015
  4. AMLOR [Suspect]
     Route: 048
     Dates: start: 20071009, end: 20071016

REACTIONS (3)
  - ENANTHEMA [None]
  - RASH MACULO-PAPULAR [None]
  - RASH PUSTULAR [None]
